FAERS Safety Report 6222603-4 (Version None)
Quarter: 2009Q2

REPORT INFORMATION
  Report Type: 
  Country: None (occurrence: None)
  Receive Date: 20090609
  Receipt Date: 20090609
  Transmission Date: 20091009
  Serious: Yes (Hospitalization)
  Sender: FDA-Public Use
  Company Number: None

PATIENT
  Sex: Male
  Weight: 120 kg

DRUGS (6)
  1. PREDNISONE TAB [Suspect]
     Dosage: 1400 MG
  2. RITUXIMAB (MOAB C2B8 ANTI CD20, CHIMERIC) [Suspect]
     Dosage: 850 MG
  3. VINCRISTINE SULFATE [Suspect]
     Dosage: 3.6 MG
  4. CYCLOPHOSPHAMIDE [Suspect]
     Dosage: 1720 MG
  5. DOXORUBICIN HCL [Suspect]
     Dosage: 92 MG
  6. ETOPOSIDE [Suspect]
     Dosage: 460 MG

REACTIONS (1)
  - BLOOD GLUCOSE INCREASED [None]
